FAERS Safety Report 6376541-7 (Version None)
Quarter: 2009Q3

REPORT INFORMATION
  Report Type: 
  Country: None (occurrence: None)
  Receive Date: 20090922
  Receipt Date: 20090922
  Transmission Date: 20100115
  Serious: Yes (Disabling, Other)
  Sender: FDA-Public Use
  Company Number: None

PATIENT
  Age: 45 Year
  Sex: Female
  Weight: 97.977 kg

DRUGS (3)
  1. PROVIGIL [Suspect]
     Indication: FATIGUE
     Dosage: 200 MG 1 TIME DAILY PO
     Route: 048
     Dates: start: 20081001, end: 20090701
  2. PROVIGIL [Suspect]
     Indication: SLEEP APNOEA SYNDROME
     Dosage: 200 MG 1 TIME DAILY PO
     Route: 048
     Dates: start: 20081001, end: 20090701
  3. PROVIGIL [Suspect]
     Indication: SOMNOLENCE
     Dosage: 200 MG 1 TIME DAILY PO
     Route: 048
     Dates: start: 20081001, end: 20090701

REACTIONS (4)
  - ARTHRALGIA [None]
  - JOINT SWELLING [None]
  - PAIN IN EXTREMITY [None]
  - VENOUS INSUFFICIENCY [None]
